FAERS Safety Report 7336068-2 (Version None)
Quarter: 2011Q1

REPORT INFORMATION
  Report Type: 
  Country: None (occurrence: None)
  Receive Date: 20110301
  Receipt Date: 20110301
  Transmission Date: 20110831
  Serious: No
  Sender: FDA-Public Use
  Company Number: None

PATIENT
  Age: 85 Year
  Sex: Female

DRUGS (1)
  1. VANCOMYCIN [Suspect]
     Dosage: 1 GM / 250CC NSS ONCE IV PIGGYBACK
     Route: 042
     Dates: start: 20110226, end: 20110226

REACTIONS (2)
  - PRURITUS [None]
  - INFUSION SITE ERYTHEMA [None]
